FAERS Safety Report 7385722-5 (Version None)
Quarter: 2011Q1

REPORT INFORMATION
  Report Type: 
  Country: None (occurrence: None)
  Receive Date: 20110331
  Receipt Date: 20101006
  Transmission Date: 20110831
  Serious: Yes (Hospitalization)
  Sender: FDA-Public Use
  Company Number: US-BAYER-200944021NA

PATIENT
  Sex: Female
  Weight: 54.422 kg

DRUGS (4)
  1. YASMIN [Suspect]
     Indication: PRODUCT USED FOR UNKNOWN INDICATION
     Dosage: UNK
     Dates: start: 20061001, end: 20080115
  2. PANTOPRAZOLE SODIUM [Concomitant]
     Dosage: 40 MG, UNK
  3. TRAMADOL [Concomitant]
  4. YAZ [Suspect]
     Indication: PRODUCT USED FOR UNKNOWN INDICATION
     Dosage: UNK
     Dates: start: 20061001, end: 20080115

REACTIONS (4)
  - ARTERIAL THROMBOSIS LIMB [None]
  - ILIAC ARTERY THROMBOSIS [None]
  - PULMONARY EMBOLISM [None]
  - DEEP VEIN THROMBOSIS [None]
